FAERS Safety Report 17878948 (Version 1)
Quarter: 2020Q2

REPORT INFORMATION
  Report Type: Spontaneous
  Country: US (occurrence: US)
  Receive Date: 20200609
  Receipt Date: 20200609
  Transmission Date: 20200714
  Serious: Yes (Hospitalization)
  Sender: FDA-Public Use
  Company Number: None

PATIENT
  Sex: Male

DRUGS (7)
  1. VIMPAT [Concomitant]
     Active Substance: LACOSAMIDE
  2. VALACYDOVIR [Concomitant]
  3. ARMADAFINIL [Concomitant]
  4. DILANTIN [Concomitant]
     Active Substance: PHENYTOIN
  5. MODEFINIL [Concomitant]
  6. PRAVASTATIN. [Concomitant]
     Active Substance: PRAVASTATIN
  7. OCREVUS [Suspect]
     Active Substance: OCRELIZUMAB
     Indication: MULTIPLE SCLEROSIS
     Dosage: ?          OTHER FREQUENCY:Q6 MONTHS;?
     Route: 042
     Dates: start: 20200520

REACTIONS (1)
  - Unevaluable event [None]
